FAERS Safety Report 6660373-6 (Version None)
Quarter: 2010Q1

REPORT INFORMATION
  Report Type: 
  Country: None (occurrence: None)
  Receive Date: 20100330
  Receipt Date: 20100330
  Transmission Date: 20100710
  Serious: Yes (Disabling, Other)
  Sender: FDA-Public Use
  Company Number: None

PATIENT
  Age: 84 Year
  Sex: Female
  Weight: 54.4316 kg

DRUGS (1)
  1. RECLAST [Suspect]
     Indication: ARTHRITIS
     Dosage: 1 TIME
     Dates: start: 20090213

REACTIONS (4)
  - ABASIA [None]
  - BONE PAIN [None]
  - MOVEMENT DISORDER [None]
  - SPINAL DEFORMITY [None]
